FAERS Safety Report 5888541-1 (Version None)
Quarter: 2008Q3

REPORT INFORMATION
  Report Type: 
  Country: None (occurrence: None)
  Receive Date: 20080918
  Receipt Date: 20080905
  Transmission Date: 20090109
  Serious: No
  Sender: FDA-Public Use
  Company Number: US-B.I. PHARMACEUTICALS,INC./RIDGEFIELD-2008-BP-09414BP

PATIENT
  Sex: Female

DRUGS (6)
  1. MIRAPEX [Suspect]
     Indication: RESTLESS LEGS SYNDROME
     Dosage: .25MG
  2. ATENOLOL [Concomitant]
     Dosage: 25MG
  3. LISINOPRIL [Concomitant]
     Dosage: 25MG
  4. ALENDRONATE SODIUM [Concomitant]
     Dosage: 10MG
  5. GLUCOSAMINE [Concomitant]
  6. CALCIUM GLUCONATE [Concomitant]

REACTIONS (1)
  - CONDITION AGGRAVATED [None]
